FAERS Safety Report 8068348-X (Version None)
Quarter: 2012Q1

REPORT INFORMATION
  Report Type: 
  Country: None (occurrence: None)
  Receive Date: 20120124
  Receipt Date: 20111020
  Transmission Date: 20120608
  Serious: No
  Sender: FDA-Public Use
  Company Number: US-AMGEN-USASP2011054375

PATIENT
  Age: 82 Year
  Sex: Female

DRUGS (2)
  1. PROLIA [Suspect]
     Indication: PRODUCT USED FOR UNKNOWN INDICATION
     Dosage: UNK
     Dates: start: 20110501
  2. ANTIHYPERTENSIVES [Concomitant]
     Dosage: UNK

REACTIONS (3)
  - PAIN IN EXTREMITY [None]
  - ARTHRALGIA [None]
  - BACK PAIN [None]
